FAERS Safety Report 6264958-0 (Version None)
Quarter: 2009Q3

REPORT INFORMATION
  Report Type: 
  Country: None (occurrence: None)
  Receive Date: 20090713
  Receipt Date: 20090630
  Transmission Date: 20100115
  Serious: Yes (Life-Threatening)
  Sender: FDA-Public Use
  Company Number: DE-RANBAXY-2009RR-25407

PATIENT
  Age: 82 Year
  Sex: Female
  Weight: 61 kg

DRUGS (2)
  1. ACYCLOVIR [Suspect]
     Indication: HERPES ZOSTER
     Dosage: 1 DF, TID
     Dates: start: 20090512, end: 20090518
  2. FALITHROM [Suspect]
     Indication: ATRIAL FIBRILLATION

REACTIONS (2)
  - DRUG INTERACTION [None]
  - INTERNATIONAL NORMALISED RATIO INCREASED [None]
